FAERS Safety Report 12168206 (Version 2)
Quarter: 2016Q1

REPORT INFORMATION
  Report Type: Report from Study
  Country: BR (occurrence: BR)
  Receive Date: 20160310
  Receipt Date: 20160322
  Transmission Date: 20160526
  Serious: Yes (Hospitalization, Other)
  Sender: FDA-Public Use
  Company Number: BR-ABBVIE-16K-020-1575562-00

PATIENT
  Sex: Female

DRUGS (1)
  1. HUMIRA [Suspect]
     Active Substance: ADALIMUMAB
     Indication: RHEUMATOID ARTHRITIS
     Route: 058
     Dates: start: 20130612

REACTIONS (7)
  - Gait disturbance [Unknown]
  - Peripheral swelling [Unknown]
  - Foot deformity [Unknown]
  - Bedridden [Unknown]
  - Osteomyelitis [Unknown]
  - Immunodeficiency [Not Recovered/Not Resolved]
  - Post procedural complication [Unknown]
